FAERS Safety Report 18342597 (Version 2)
Quarter: 2020Q4

REPORT INFORMATION
  Report Type: Spontaneous
  Country: IN (occurrence: IN)
  Receive Date: 20201005
  Receipt Date: 20201014
  Transmission Date: 20210113
  Serious: Yes (Life-Threatening, Hospitalization, Other)
  Sender: FDA-Public Use
  Company Number: IN-ACCORD-204090

PATIENT
  Age: 16 Year
  Sex: Female

DRUGS (1)
  1. ITRACONAZOLE. [Suspect]
     Active Substance: ITRACONAZOLE
     Indication: ONYCHOMYCOSIS
     Dosage: 400MG/DAY FOR 7 DAYS A MONTH, TO BE CONTINUED FOR 3-4 CYCLES
     Route: 048

REACTIONS (1)
  - SJS-TEN overlap [Recovered/Resolved]
